FAERS Safety Report 6154565-2 (Version None)
Quarter: 2009Q2

REPORT INFORMATION
  Report Type: 
  Country: None (occurrence: None)
  Receive Date: 20090414
  Receipt Date: 20090407
  Transmission Date: 20091009
  Serious: Yes (Other)
  Sender: FDA-Public Use
  Company Number: ZA-AVENTIS-200819593GDDC

PATIENT
  Age: 19 Year
  Sex: Male
  Weight: 58 kg

DRUGS (5)
  1. RIFAMPICIN [Suspect]
     Indication: TUBERCULOSIS
     Dates: start: 20080801
  2. ISONIAZID [Suspect]
     Indication: TUBERCULOSIS
     Dates: start: 20080801
  3. PYRAZINAMIDE [Suspect]
     Indication: TUBERCULOSIS
     Dates: start: 20080801
  4. ETHAMBUTOL HCL [Suspect]
     Indication: TUBERCULOSIS
     Dates: start: 20080801
  5. CODE UNBROKEN [Suspect]
     Indication: TUBERCULOSIS
     Dates: start: 20080801

REACTIONS (1)
  - BLOOD AMYLASE INCREASED [None]
